FAERS Safety Report 20609207 (Version 1)
Quarter: 2022Q1

REPORT INFORMATION
  Report Type: Spontaneous
  Country: US (occurrence: US)
  Receive Date: 20220317
  Receipt Date: 20220317
  Transmission Date: 20220423
  Serious: Yes (Other)
  Sender: FDA-Public Use
  Company Number: US-NOVARTISPH-NVSC2022US056009

PATIENT
  Age: 42 Year
  Sex: Female

DRUGS (7)
  1. CIPROFLOXACIN [Suspect]
     Active Substance: CIPROFLOXACIN
     Indication: SJS-TEN overlap
     Dosage: UNK (MORE THAN 20 YEARS, OD)
     Route: 065
  2. CLINDAMYCIN [Suspect]
     Active Substance: CLINDAMYCIN
     Indication: SJS-TEN overlap
     Dosage: UNK
     Route: 065
  3. ERYTHROMYCIN [Suspect]
     Active Substance: ERYTHROMYCIN
     Indication: SJS-TEN overlap
     Dosage: UNK
     Route: 065
  4. PREDNISOLONE [Concomitant]
     Active Substance: PREDNISOLONE
     Indication: Persistent corneal epithelial defect
     Dosage: 1 OR 2 TIMES A DAY DEPENDING ON LEVEL OF INFLAMMATION
     Route: 061
  5. MOXIFLOXACIN [Concomitant]
     Active Substance: MOXIFLOXACIN
     Indication: Antibiotic prophylaxis
     Dosage: UNK (MORE THAN 20 YEARS IN OS)
     Route: 065
  6. VANCOMYCIN [Concomitant]
     Active Substance: VANCOMYCIN
     Indication: Evidence based treatment
     Dosage: 1 HOUR TO 2 HOURS WAS INITIATED EMPIRICALLY WHEN POSITIVE CULTURES FOR DIPHTHEROIDS WERE REPORTED
     Route: 061
  7. VANCOMYCIN [Concomitant]
     Active Substance: VANCOMYCIN
     Dosage: REDUCED TO 4 TIMES DAILY AFTER 48 HOURS OF INITIATION
     Route: 061

REACTIONS (3)
  - Pathogen resistance [Unknown]
  - Corneal deposits [Unknown]
  - Product use in unapproved indication [Unknown]
